FAERS Safety Report 6316934-7 (Version None)
Quarter: 2009Q3

REPORT INFORMATION
  Report Type: 
  Country: None (occurrence: None)
  Receive Date: 20090820
  Receipt Date: 20090817
  Transmission Date: 20100115
  Serious: Yes (Death, Hospitalization, Other)
  Sender: FDA-Public Use
  Company Number: AR-BRISTOL-MYERS SQUIBB COMPANY-14723027

PATIENT
  Age: 63 Year
  Sex: Male

DRUGS (7)
  1. APIXABAN [Suspect]
     Indication: THROMBOSIS PROPHYLAXIS
     Dosage: INTERRUPTED ON 29-JUL-09
     Route: 048
     Dates: start: 20090203, end: 20090729
  2. WARFARIN SODIUM [Suspect]
     Indication: THROMBOSIS PROPHYLAXIS
     Dosage: INTERRUPTED ON 29-JUL-2009
     Route: 048
     Dates: start: 20090203, end: 20090729
  3. PLACEBO [Suspect]
     Indication: THROMBOSIS PROPHYLAXIS
     Dosage: INTERRUPTED ON 29-JUL-09
     Route: 048
     Dates: start: 20090203, end: 20090729
  4. FUROSEMIDE [Concomitant]
     Indication: CARDIAC FAILURE
     Dates: start: 20080904
  5. ENALAPRIL MALEATE [Concomitant]
     Indication: CARDIAC FAILURE
     Dates: start: 20040101
  6. ENALAPRIL MALEATE [Concomitant]
     Indication: HYPERTENSION
     Dates: start: 20040101
  7. AMLODIPINE [Concomitant]
     Indication: HYPERTENSION
     Dates: start: 20080918, end: 20090729

REACTIONS (1)
  - HEPATITIS ACUTE [None]
